FAERS Safety Report 7170968-1 (Version None)
Quarter: 2010Q4

REPORT INFORMATION
  Report Type: 
  Country: None (occurrence: None)
  Receive Date: 20101217
  Receipt Date: 20101213
  Transmission Date: 20110411
  Serious: Yes (Hospitalization, Other)
  Sender: FDA-Public Use
  Company Number: US-MERCK-1011USA01247

PATIENT
  Age: 44 Year
  Sex: Female

DRUGS (6)
  1. JANUVIA [Suspect]
     Indication: DIABETES MELLITUS
     Route: 048
  2. METFORMIN [Concomitant]
     Indication: DIABETES MELLITUS
     Route: 048
  3. LOVAZA [Concomitant]
     Indication: BLOOD TRIGLYCERIDES
     Route: 065
  4. AVAPRO [Concomitant]
     Indication: HYPERTENSION
     Route: 048
  5. VITAMIN D (UNSPECIFIED) [Concomitant]
     Route: 065
  6. CYANOCOBALAMIN [Concomitant]
     Route: 065

REACTIONS (2)
  - CHOLECYSTITIS CHRONIC [None]
  - PANCREATITIS [None]
